FAERS Safety Report 13905269 (Version 2)
Quarter: 2017Q4

REPORT INFORMATION
  Report Type: Spontaneous
  Country: FR (occurrence: FR)
  Receive Date: 20170825
  Receipt Date: 20171027
  Transmission Date: 20180320
  Serious: Yes (Hospitalization)
  Sender: FDA-Public Use
  Company Number: PHHY2017FR122336

PATIENT
  Age: 10 Year
  Sex: Female
  Weight: 25.5 kg

DRUGS (11)
  1. BACTRIM [Suspect]
     Active Substance: SULFAMETHOXAZOLE\TRIMETHOPRIM
     Indication: PROPHYLAXIS
     Dosage: 2 DF, TIW
     Route: 048
     Dates: start: 20170729, end: 20170807
  2. FERROSTRANE [Suspect]
     Active Substance: SODIUM FEREDETATE
     Indication: MICROCYTIC ANAEMIA
     Dosage: 0.5 DF, QD
     Route: 048
     Dates: start: 20170720, end: 20170807
  3. PARACETAMOL [Concomitant]
     Active Substance: ACETAMINOPHEN
     Indication: PYREXIA
     Dosage: UNK UNK, PRN
     Route: 065
     Dates: start: 20170717
  4. PRIVIGEN [Suspect]
     Active Substance: HUMAN IMMUNOGLOBULIN G
     Indication: IMMUNOSUPPRESSION
     Dosage: 1 DF, TID PER CYCLE
     Route: 065
     Dates: start: 20170722, end: 20170724
  5. GENTAMICIN ^PANPHARMA^ [Suspect]
     Active Substance: GENTAMICIN
     Indication: PYREXIA
     Dosage: 125 MG, QD
     Route: 042
     Dates: start: 20170718, end: 20170804
  6. NEUROPHEN (IBUPROFEN) [Suspect]
     Active Substance: IBUPROFEN
     Indication: PYREXIA
     Dosage: 250 MG, TID
     Route: 048
     Dates: start: 20170731, end: 20170804
  7. AMBISOM [Suspect]
     Active Substance: AMPHOTERICIN B
     Indication: PYREXIA
     Dosage: 75 MG, QD
     Route: 042
     Dates: start: 20170726, end: 20170804
  8. ZOPHREN [Suspect]
     Active Substance: ONDANSETRON
     Indication: VOMITING
     Dosage: 1 DF, QD
     Route: 048
     Dates: start: 20170722, end: 20170806
  9. KARDEGIC [Concomitant]
     Active Substance: ASPIRIN DL-LYSINE
     Indication: CARDIAC DISORDER
     Dosage: UNK
     Route: 048
     Dates: start: 20170708
  10. VANCOMICINA MYLAN [Suspect]
     Active Substance: VANCOMYCIN
     Indication: PYREXIA
     Dosage: 625 MG, BID
     Route: 042
     Dates: start: 20170718, end: 20170804
  11. LASILIX [Suspect]
     Active Substance: FUROSEMIDE
     Indication: PROPHYLAXIS
     Dosage: 25 MG, QD
     Route: 048
     Dates: start: 20170717, end: 20170804

REACTIONS (3)
  - Lymphadenopathy [Recovered/Resolved]
  - Pyrexia [Recovered/Resolved]
  - Rash [Recovered/Resolved]

NARRATIVE: CASE EVENT DATE: 20170805
